APPROVED DRUG PRODUCT: PYRIDOSTIGMINE BROMIDE
Active Ingredient: PYRIDOSTIGMINE BROMIDE
Strength: 30MG
Dosage Form/Route: TABLET;ORAL
Application: A089572 | Product #001
Applicant: SOLVAY PHARMACEUTICALS
Approved: Nov 27, 1990 | RLD: No | RS: No | Type: DISCN